FAERS Safety Report 24032433 (Version 1)
Quarter: 2024Q3

REPORT INFORMATION
  Report Type: Spontaneous
  Country: US (occurrence: US)
  Receive Date: 20240701
  Receipt Date: 20240701
  Transmission Date: 20241016
  Serious: Yes (Other)
  Sender: AMGEN
  Company Number: US-AMGEN-USASP2024125586

PATIENT
  Age: 72 Year
  Sex: Female

DRUGS (11)
  1. REPATHA [Suspect]
     Active Substance: EVOLOCUMAB
     Indication: Blood cholesterol increased
     Dosage: 140 MILLIGRAM, Q2WK
     Route: 058
     Dates: start: 202401
  2. REPATHA [Suspect]
     Active Substance: EVOLOCUMAB
     Dosage: 140 MILLIGRAM, Q2WK
     Route: 058
     Dates: start: 202401
  3. JARDIAN [Concomitant]
     Indication: Diabetes mellitus
  4. TRICOR [Concomitant]
     Active Substance: FENOFIBRATE
  5. METOPROLOL [Concomitant]
     Active Substance: METOPROLOL
  6. LEVOTHYROXINE [Concomitant]
     Active Substance: LEVOTHYROXINE\LEVOTHYROXINE SODIUM
  7. OMEPRAZOLE [Concomitant]
     Active Substance: OMEPRAZOLE
  8. DILTIAZEM [Concomitant]
     Active Substance: DILTIAZEM
  9. IPRATROPIUM [Concomitant]
     Active Substance: IPRATROPIUM
  10. BROVANA [Concomitant]
     Active Substance: ARFORMOTEROL TARTRATE
  11. ALBUTEROL [Concomitant]
     Active Substance: ALBUTEROL

REACTIONS (5)
  - Diabetes mellitus [Unknown]
  - Device difficult to use [Unknown]
  - Chronic obstructive pulmonary disease [Unknown]
  - Muscle spasms [Not Recovered/Not Resolved]
  - Myalgia [Unknown]

NARRATIVE: CASE EVENT DATE: 20240101
